FAERS Safety Report 7681727-5 (Version None)
Quarter: 2011Q3

REPORT INFORMATION
  Report Type: 
  Country: None (occurrence: None)
  Receive Date: 20110812
  Receipt Date: 20110803
  Transmission Date: 20111222
  Serious: Yes (Other)
  Sender: FDA-Public Use
  Company Number: US-ASTRAZENECA-2011SE15990

PATIENT
  Sex: Male

DRUGS (9)
  1. DILANTIN [Concomitant]
     Indication: EPILEPSY
  2. METHOCARBAMOL [Concomitant]
  3. EPILEPSY MEDICATION [Interacting]
     Route: 065
  4. TAMSULOSIN HCL [Concomitant]
     Indication: PROSTATE CANCER
  5. DIPHENHYDRAMINE HCL [Concomitant]
  6. PHENOBARBITAL TAB [Concomitant]
     Indication: EPILEPSY
  7. SEROQUEL [Suspect]
     Indication: SLEEP DISORDER
     Route: 048
     Dates: start: 20090101
  8. LORAZEPAM [Concomitant]
  9. BACLOFEN [Concomitant]

REACTIONS (7)
  - DRUG INTERACTION [None]
  - INCORRECT DOSE ADMINISTERED [None]
  - OFF LABEL USE [None]
  - AMNESIA [None]
  - LOSS OF CONSCIOUSNESS [None]
  - FLASHBACK [None]
  - NIGHTMARE [None]
